FAERS Safety Report 25739970 (Version 2)
Quarter: 2025Q4

REPORT INFORMATION
  Report Type: Spontaneous
  Country: US (occurrence: US)
  Receive Date: 20250829
  Receipt Date: 20251121
  Transmission Date: 20260117
  Serious: Yes (Disabling, Other)
  Sender: REGENERON
  Company Number: US-REGENERON PHARMACEUTICALS, INC.-2025-136122

PATIENT
  Sex: Male

DRUGS (6)
  1. EYLEA [Suspect]
     Active Substance: AFLIBERCEPT
     Indication: Eye swelling
     Dosage: 2 MG; FORMULATION: PREFILLED SYRINGE (PFS) (GERRESHEIMER)
     Route: 031
     Dates: start: 20240628, end: 20240628
  2. EYLEA [Suspect]
     Active Substance: AFLIBERCEPT
     Dosage: 2 MG; FORMULATION: PREFILLED SYRINGE (PFS) (GERRESHEIMER)
     Route: 031
     Dates: start: 20240830, end: 20240830
  3. EYLEA [Suspect]
     Active Substance: AFLIBERCEPT
     Dosage: 2 MG; FORMULATION: PREFILLED SYRINGE (PFS) (GERRESHEIMER)
     Route: 031
     Dates: start: 20241011, end: 20241011
  4. EYLEA [Suspect]
     Active Substance: AFLIBERCEPT
     Dosage: 2 MG; FORMULATION: PREFILLED SYRINGE (PFS) (GERRESHEIMER)
     Route: 031
     Dates: start: 20241122, end: 20241122
  5. EYLEA [Suspect]
     Active Substance: AFLIBERCEPT
     Dosage: 2 MG; FORMULATION: PREFILLED SYRINGE (PFS) (GERRESHEIMER)
     Route: 031
     Dates: start: 20241227, end: 20241227
  6. EYLEA [Suspect]
     Active Substance: AFLIBERCEPT
     Dosage: 2 MG; FORMULATION: PREFILLED SYRINGE (PFS) (GERRESHEIMER)
     Route: 031
     Dates: start: 20250131, end: 20250131

REACTIONS (2)
  - Blindness [Not Recovered/Not Resolved]
  - Retinal haemorrhage [Not Recovered/Not Resolved]
